FAERS Safety Report 17802474 (Version 1)
Quarter: 2020Q2

REPORT INFORMATION
  Report Type: Spontaneous
  Country: US (occurrence: US)
  Receive Date: 20200518
  Receipt Date: 20200518
  Transmission Date: 20200714
  Serious: No
  Sender: FDA-Public Use
  Company Number: None

PATIENT
  Age: 61 Year
  Sex: Female

DRUGS (1)
  1. REMICADE [Suspect]
     Active Substance: INFLIXIMAB
     Indication: RHEUMATOID ARTHRITIS
     Dosage: ?          OTHER FREQUENCY:EVERY6WEEKS;?
     Dates: start: 202002, end: 20200410

REACTIONS (4)
  - Headache [None]
  - Infusion related reaction [None]
  - Rash erythematous [None]
  - Erythema [None]

NARRATIVE: CASE EVENT DATE: 20200411
